FAERS Safety Report 7281521-3 (Version None)
Quarter: 2011Q1

REPORT INFORMATION
  Report Type: 
  Country: None (occurrence: None)
  Receive Date: 20110208
  Receipt Date: 20110204
  Transmission Date: 20110831
  Serious: Yes (Other)
  Sender: FDA-Public Use
  Company Number: US-PFIZER INC-2011026226

PATIENT
  Sex: Male
  Weight: 104 kg

DRUGS (1)
  1. ZOLOFT [Suspect]
     Indication: DEPRESSION
     Dosage: DAILY AT BEDTIME
     Route: 048

REACTIONS (4)
  - NEGATIVE THOUGHTS [None]
  - SUICIDAL IDEATION [None]
  - AGGRESSION [None]
  - AFFECT LABILITY [None]
